FAERS Safety Report 19380456 (Version 1)
Quarter: 2021Q2

REPORT INFORMATION
  Report Type: Spontaneous
  Country: US (occurrence: US)
  Receive Date: 20210607
  Receipt Date: 20210607
  Transmission Date: 20210717
  Serious: No
  Sender: FDA-Public Use
  Company Number: US-TEVA-2021-US-1915147

PATIENT
  Sex: Female

DRUGS (2)
  1. ESTRADIOL. [Suspect]
     Active Substance: ESTRADIOL
     Dosage: HAD IT FOR ABOUT 8 YEARS
     Route: 067
  2. ESTRADIOL TEVA [Suspect]
     Active Substance: ESTRADIOL
     Route: 065
     Dates: start: 20210331

REACTIONS (2)
  - Drug ineffective [Unknown]
  - Hot flush [Unknown]
